FAERS Safety Report 10050182 (Version 1)
Quarter: 2014Q2

REPORT INFORMATION
  Report Type: Spontaneous
  Country: US (occurrence: US)
  Receive Date: 20140401
  Receipt Date: 20140401
  Transmission Date: 20141212
  Serious: No
  Sender: FDA-Public Use
  Company Number: US-009507513-1403USA011530

PATIENT
  Sex: Male

DRUGS (3)
  1. LOSARTAN POTASSIUM [Suspect]
     Route: 048
  2. VALSARTAN [Suspect]
  3. AMLODIPINE [Suspect]

REACTIONS (2)
  - Adverse event [Unknown]
  - Drug ineffective [Unknown]
